FAERS Safety Report 4609615-9 (Version None)
Quarter: 2005Q1

REPORT INFORMATION
  Report Type: 
  Country: None (occurrence: None)
  Receive Date: 20050314
  Receipt Date: 20050314
  Transmission Date: 20050727
  Serious: Yes (Disabling)
  Sender: FDA-Public Use
  Company Number: None

PATIENT
  Age: 40 Year
  Sex: Female
  Weight: 47 kg

DRUGS (2)
  1. ATORVASTATIN   40 [Suspect]
     Indication: HYPERLIPIDAEMIA
     Dosage: ONCE   NIGHT   ORAL
     Route: 048
     Dates: start: 20020926, end: 20050103
  2. PRAVASTATIN [Suspect]
     Dosage: ONCE   NIGHT   ORAL
     Route: 048
     Dates: start: 20000920, end: 20020925

REACTIONS (3)
  - FATIGUE [None]
  - MYALGIA [None]
  - NEUROPATHY [None]
